FAERS Safety Report 7525701-8 (Version None)
Quarter: 2011Q2

REPORT INFORMATION
  Report Type: 
  Country: None (occurrence: None)
  Receive Date: 20110606
  Receipt Date: 20110526
  Transmission Date: 20111010
  Serious: Yes (Hospitalization)
  Sender: FDA-Public Use
  Company Number: PHHO2011AR09251

PATIENT
  Sex: Female
  Weight: 63 kg

DRUGS (3)
  1. MEPREDNISONE [Concomitant]
     Indication: RENAL TRANSPLANT
  2. MYCOPHENOLATE MOFETIL [Concomitant]
     Indication: RENAL TRANSPLANT
     Dosage: UNK
     Dates: start: 20041215
  3. CERTICAN [Suspect]
     Indication: RENAL TRANSPLANT
     Dosage: 2 MG, UNK
     Route: 048
     Dates: start: 20100913

REACTIONS (4)
  - ASTHENIA [None]
  - DIARRHOEA [None]
  - PYREXIA [None]
  - HYPERTENSION [None]
